FAERS Safety Report 9626895 (Version 1)
Quarter: 2013Q4

REPORT INFORMATION
  Report Type: Spontaneous
  Country: GB (occurrence: US)
  Receive Date: 20131016
  Receipt Date: 20131016
  Transmission Date: 20140711
  Serious: Yes (Hospitalization, Other)
  Sender: FDA-Public Use
  Company Number: US-PFIZER INC-2013291784

PATIENT
  Age: 19 Year
  Sex: Male

DRUGS (3)
  1. PHENYTOIN [Suspect]
     Indication: CONVULSION
     Dosage: 400 MG, DAILY
  2. PHENOBARBITAL [Suspect]
     Indication: CONVULSION
     Dosage: 240 MG, DAILY
  3. CHLORPROMAZINE [Concomitant]
     Dosage: 100 MG, DAILY

REACTIONS (8)
  - Toxicity to various agents [Recovering/Resolving]
  - Anticonvulsant drug level increased [Recovering/Resolving]
  - Choreoathetosis [Recovered/Resolved]
  - Dystonia [Recovered/Resolved]
  - Ataxia [Recovering/Resolving]
  - Nystagmus [Recovering/Resolving]
  - Dysphagia [Recovered/Resolved]
  - Abasia [Recovering/Resolving]
